FAERS Safety Report 7157517-9 (Version None)
Quarter: 2010Q4

REPORT INFORMATION
  Report Type: 
  Country: None (occurrence: None)
  Receive Date: 20101214
  Receipt Date: 20100217
  Transmission Date: 20110411
  Serious: No
  Sender: FDA-Public Use
  Company Number: DE-ASTRAZENECA-2010SE06996

PATIENT
  Age: 72 Year
  Sex: Male

DRUGS (1)
  1. CRESTOR [Suspect]
     Route: 048
     Dates: start: 20100201

REACTIONS (1)
  - BLOOD URINE PRESENT [None]
